FAERS Safety Report 5700124-2 (Version None)
Quarter: 2008Q2

REPORT INFORMATION
  Report Type: 
  Country: None (occurrence: None)
  Receive Date: 20080410
  Receipt Date: 20080328
  Transmission Date: 20081010
  Serious: Yes (Other)
  Sender: FDA-Public Use
  Company Number: BE-ELI_LILLY_AND_COMPANY-BE200802002421

PATIENT
  Age: 80 Year
  Sex: Female
  Weight: 80 kg

DRUGS (7)
  1. CYMBALTA [Suspect]
     Indication: DEPRESSION
     Dosage: 90 MG, UNKNOWN
     Route: 065
     Dates: start: 20080222, end: 20080223
  2. CYMBALTA [Interacting]
     Dosage: UNK, UNKNOWN
     Route: 065
     Dates: start: 20080101
  3. TRAMADOL HCL [Interacting]
     Indication: ARTHRITIS
     Dosage: 500 MG, 3/D
     Route: 048
     Dates: start: 20080201
  4. CORUNO [Concomitant]
     Indication: ANGINA PECTORIS
     Dosage: 16 MG, DAILY (1/D)
     Route: 048
     Dates: start: 20040801
  5. CARVEDILOL [Concomitant]
     Indication: HYPERTENSION
     Dosage: 50 MG, DAILY (1/D)
     Route: 048
     Dates: start: 20040801
  6. MICARDIS [Concomitant]
     Indication: HYPERTENSION
     Dosage: 40 MG, DAILY (1/D)
     Route: 048
     Dates: start: 20040801
  7. DAFALGAN [Concomitant]
     Indication: ARTHRITIS
     Dosage: 1 G, 3/D
     Route: 048

REACTIONS (6)
  - DRUG INTERACTION [None]
  - DYSKINESIA [None]
  - HALLUCINATION [None]
  - MEDICATION ERROR [None]
  - PSYCHOTIC DISORDER [None]
  - SOMNOLENCE [None]
